FAERS Safety Report 8048566-7 (Version None)
Quarter: 2012Q1

REPORT INFORMATION
  Report Type: 
  Country: None (occurrence: None)
  Receive Date: 20120117
  Receipt Date: 20120110
  Transmission Date: 20120608
  Serious: Yes (Hospitalization)
  Sender: FDA-Public Use
  Company Number: DE-BRISTOL-MYERS SQUIBB COMPANY-15646854

PATIENT
  Age: 79 Year
  Sex: Male
  Weight: 77 kg

DRUGS (6)
  1. CISPLATIN [Suspect]
     Indication: NON-SMALL CELL LUNG CANCER STAGE IV
     Dosage: EVERY 21DAYS/CYCLE LAST DOSE:27JAN11
     Route: 042
     Dates: start: 20101230
  2. NECITUMUMAB [Suspect]
     Indication: NON-SMALL CELL LUNG CANCER STAGE IV
     Dosage: EVERY 21DAYS/CYCLE LAST DOSE ON 23FEB11
     Route: 042
     Dates: start: 20101230
  3. VITAMIN B-12 [Concomitant]
     Dates: start: 20101221, end: 20110216
  4. FOLIC ACID [Concomitant]
     Dates: start: 20101221, end: 20110524
  5. PEMETREXED DISODIUM [Suspect]
     Indication: NON-SMALL CELL LUNG CANCER STAGE IV
     Dosage: EVERY 21DAYS/CYCLE LAST DOSE:27JAN11
     Route: 042
     Dates: start: 20101230
  6. DEXAMETHASONE [Concomitant]
     Dates: start: 20101229, end: 20110512

REACTIONS (2)
  - ANAEMIA [None]
  - DUODENAL ULCER [None]
